FAERS Safety Report 5670542-X (Version None)
Quarter: 2008Q1

REPORT INFORMATION
  Report Type: 
  Country: None (occurrence: None)
  Receive Date: 20080318
  Receipt Date: 20080311
  Transmission Date: 20080703
  Serious: Yes (Other)
  Sender: FDA-Public Use
  Company Number: PHHY2008BR03174

PATIENT
  Sex: Female

DRUGS (3)
  1. LORAX [Concomitant]
     Indication: EMOTIONAL DISORDER
     Dosage: 3 TABLETS/DAY
     Route: 048
  2. VITAMINA MASTER [Concomitant]
     Route: 048
  3. TOFRANIL [Suspect]
     Indication: EMOTIONAL DISORDER
     Dosage: 2 DF, QD
     Route: 048

REACTIONS (7)
  - EMOTIONAL DISORDER [None]
  - FALL [None]
  - FATIGUE [None]
  - FEELING ABNORMAL [None]
  - FEMUR FRACTURE [None]
  - GAIT DISTURBANCE [None]
  - PAIN IN EXTREMITY [None]
